FAERS Safety Report 10570081 (Version 1)
Quarter: 2014Q4

REPORT INFORMATION
  Report Type: Spontaneous
  Country: US (occurrence: None)
  Receive Date: 20141105
  Receipt Date: 20141105
  Transmission Date: 20150529
  Serious: Yes (Other)
  Sender: FDA-Public Use
  Company Number: ADR-2014-01146

PATIENT
  Age: 63 Year
  Sex: Male

DRUGS (3)
  1. BACLOFEN INTRATHECAL [Suspect]
     Active Substance: BACLOFEN
     Indication: PAIN
  2. FENTANYL (INTRATHECAL) 700 MCG/ML [Suspect]
     Active Substance: FENTANYL
     Indication: PAIN
  3. BUPIVACAINE (INTRATHECAL) 30 MG/ML [Suspect]
     Active Substance: BUPIVACAINE

REACTIONS (6)
  - Implant site infection [None]
  - Device failure [None]
  - Device alarm issue [None]
  - Incision site complication [None]
  - Back pain [None]
  - Wound [None]

NARRATIVE: CASE EVENT DATE: 20140521
